FAERS Safety Report 6022995-5 (Version None)
Quarter: 2008Q4

REPORT INFORMATION
  Report Type: 
  Country: None (occurrence: None)
  Receive Date: 20081230
  Receipt Date: 20080520
  Transmission Date: 20090506
  Serious: No
  Sender: FDA-Public Use
  Company Number: US-ABBOTT-08P-163-0452649-00

PATIENT
  Sex: Male

DRUGS (1)
  1. OMNICEF [Suspect]
     Indication: OTITIS MEDIA
     Dosage: 3/4 TSP DAILY AT HS
     Route: 048
     Dates: start: 20080515

REACTIONS (4)
  - ARTHRALGIA [None]
  - DERMATITIS DIAPER [None]
  - DIARRHOEA [None]
  - GAIT DISTURBANCE [None]
